FAERS Safety Report 5420066-X (Version None)
Quarter: 2007Q3

REPORT INFORMATION
  Report Type: 
  Country: None (occurrence: None)
  Receive Date: 20070820
  Receipt Date: 20070808
  Transmission Date: 20080115
  Serious: Yes (Death)
  Sender: FDA-Public Use
  Company Number: AT-PFIZER INC-2007066032

PATIENT
  Age: 47 Year
  Sex: Female

DRUGS (1)
  1. DEPOCON [Suspect]
     Indication: CONTRACEPTION
     Route: 030
     Dates: start: 20060101, end: 20060101

REACTIONS (2)
  - DEEP VEIN THROMBOSIS [None]
  - PULMONARY EMBOLISM [None]
